FAERS Safety Report 10347451 (Version 1)
Quarter: 2014Q3

REPORT INFORMATION
  Report Type: Spontaneous
  Country: US (occurrence: None)
  Receive Date: 20140725
  Receipt Date: 20140725
  Transmission Date: 20150326
  Serious: Yes (Hospitalization)
  Sender: FDA-Public Use
  Company Number: 2014RT000070

PATIENT
  Age: 14 Year
  Sex: Male
  Weight: 33 kg

DRUGS (8)
  1. KAYEXALATE (SODIUM POLYSTYRENE SULFONATE) [Concomitant]
  2. ZANTAC [Concomitant]
     Active Substance: RANITIDINE HYDROCHLORIDE
  3. PHOSLYRA [Concomitant]
     Active Substance: CALCIUM ACETATE
  4. ATIVAN [Concomitant]
     Active Substance: LORAZEPAM
  5. NORVASC [Concomitant]
     Active Substance: AMLODIPINE BESYLATE
  6. PROZAC [Concomitant]
     Active Substance: FLUOXETINE HYDROCHLORIDE
  7. NUTROPION (SOMATROPIN) [Concomitant]
  8. PROCYSBI DELAYED-RELEASE [Suspect]
     Active Substance: CYSTEAMINE BITARTRATE
     Indication: CYSTINOSIS
     Dosage: VIA G-TUBE
     Route: 048
     Dates: start: 201402

REACTIONS (2)
  - Depression [None]
  - Anxiety [None]

NARRATIVE: CASE EVENT DATE: 20140525
